FAERS Safety Report 24278105 (Version 1)
Quarter: 2024Q3

REPORT INFORMATION
  Report Type: Spontaneous
  Country: US (occurrence: None)
  Receive Date: 20240830
  Receipt Date: 20240830
  Transmission Date: 20241017
  Serious: Yes (Hospitalization)
  Sender: Public
  Company Number: None

PATIENT
  Age: 49 Year
  Sex: Male

DRUGS (9)
  1. ENDARI [Suspect]
     Active Substance: GLUTAMINE
     Indication: Sickle cell disease
     Dosage: 15 G GRAM (S) TWICE A DAY ORAL ?
     Route: 048
     Dates: start: 20230726
  2. ALLOPURINOL 300MG TABLETS [Concomitant]
  3. AMLODIPINE [Concomitant]
     Active Substance: AMLODIPINE BESYLATE
  4. FAMOTIDINE [Concomitant]
     Active Substance: FAMOTIDINE
  5. FLUTICASONE 50MCG NASAL SPRAY [Concomitant]
  6. FOLIC ACID [Concomitant]
     Active Substance: FOLIC ACID
  7. MORPHINE SUL 30MG ER TABLETS [Concomitant]
  8. MORPHINE SUL 30MG IMM REL TABLETS [Concomitant]
  9. XARELTO [Concomitant]
     Active Substance: RIVAROXABAN

REACTIONS (2)
  - Sickle cell disease [None]
  - Condition aggravated [None]

NARRATIVE: CASE EVENT DATE: 20240710
